FAERS Safety Report 5118194-1 (Version None)
Quarter: 2006Q3

REPORT INFORMATION
  Report Type: 
  Country: None (occurrence: None)
  Receive Date: 20060926
  Receipt Date: 20060908
  Transmission Date: 20061208
  Serious: Yes (Hospitalization)
  Sender: FDA-Public Use
  Company Number: GR200609002199

PATIENT
  Age: 75 Year
  Sex: Female

DRUGS (3)
  1. DULOXETINE HYDROCHLORIDE (DULOXETINE HYDROCHLORIDE)CAPSULE [Suspect]
     Indication: DEPRESSION
     Dosage: 60 MG, DAILY (1/D), ORAL
     Route: 048
     Dates: start: 20060701, end: 20060801
  2. ZOLOFT [Concomitant]
  3. ZYBAN   /UNK/(BUPROPION HYDROCHLORIDE) [Concomitant]

REACTIONS (3)
  - CONDITION AGGRAVATED [None]
  - DEPRESSION [None]
  - SUICIDAL IDEATION [None]
